FAERS Safety Report 13683037 (Version 2)
Quarter: 2017Q2

REPORT INFORMATION
  Report Type: Spontaneous
  Country: IL (occurrence: IL)
  Receive Date: 20170623
  Receipt Date: 20170626
  Transmission Date: 20170830
  Serious: Yes (Hospitalization)
  Sender: FDA-Public Use
  Company Number: IL-ACTELION-A-CH2017-155240

PATIENT
  Age: 45 Year
  Sex: Female

DRUGS (6)
  1. OPSUMIT [Concomitant]
     Active Substance: MACITENTAN
     Indication: PULMONARY ARTERIAL HYPERTENSION
     Dosage: 10 MG, QD
     Route: 048
  2. REVATIO [Concomitant]
     Active Substance: SILDENAFIL CITRATE
     Indication: PULMONARY ARTERIAL HYPERTENSION
  3. UPTRAVI [Suspect]
     Active Substance: SELEXIPAG
     Indication: PULMONARY ARTERIAL HYPERTENSION
     Dosage: 200 ?G, BID
     Route: 048
     Dates: start: 201705
  4. AVASTIN [Concomitant]
     Active Substance: BEVACIZUMAB
  5. FUSID [Concomitant]
     Active Substance: FUROSEMIDE
  6. CARDILOC [Concomitant]
     Active Substance: BISOPROLOL FUMARATE

REACTIONS (1)
  - Cholecystitis [Unknown]
